FAERS Safety Report 5016451-0 (Version None)
Quarter: 2006Q2

REPORT INFORMATION
  Report Type: 
  Country: None (occurrence: None)
  Receive Date: 20060531
  Receipt Date: 20060531
  Transmission Date: 20061013
  Serious: Yes (Hospitalization)
  Sender: FDA-Public Use
  Company Number: None

PATIENT
  Age: 52 Year
  Sex: Male
  Weight: 102.0593 kg

DRUGS (6)
  1. BEVACIZUMAB 10MG/ KG IV Q 2 WEEKS [Suspect]
     Indication: TONGUE NEOPLASM MALIGNANT STAGE UNSPECIFIED
     Route: 042
  2. ERLOTINIB 100 MG PO QD [Suspect]
     Route: 048
  3. OCYCODONE [Concomitant]
  4. MIRALAX [Concomitant]
  5. PROTONIX [Concomitant]
  6. ERLOTINIB [Concomitant]

REACTIONS (4)
  - HYPOTENSION [None]
  - LEUKOCYTOCLASTIC VASCULITIS [None]
  - PYREXIA [None]
  - SYNCOPE [None]
